FAERS Safety Report 11220875 (Version 1)
Quarter: 2015Q2

REPORT INFORMATION
  Report Type: Spontaneous
  Country: US (occurrence: None)
  Receive Date: 20150625
  Receipt Date: 20150625
  Transmission Date: 20150821
  Serious: Yes (Hospitalization)
  Sender: FDA-Public Use
  Company Number: None

PATIENT
  Age: 73 Year
  Sex: Male
  Weight: 90.9 kg

DRUGS (2)
  1. SUCRALFATE. [Suspect]
     Active Substance: SUCRALFATE
     Indication: GASTRIC DISORDER
     Route: 048
     Dates: start: 20141212, end: 20150220
  2. OMEPRAZOLE. [Suspect]
     Active Substance: OMEPRAZOLE
     Indication: OESOPHAGEAL STENOSIS
     Route: 048
     Dates: start: 20141210, end: 20150223

REACTIONS (6)
  - Drug interaction [None]
  - Vomiting [None]
  - Nausea [None]
  - Drug effect decreased [None]
  - Dysphagia [None]
  - Impaired healing [None]

NARRATIVE: CASE EVENT DATE: 20150403
